FAERS Safety Report 16934044 (Version 1)
Quarter: 2019Q4

REPORT INFORMATION
  Report Type: Spontaneous
  Country: US (occurrence: US)
  Receive Date: 20191017
  Receipt Date: 20191017
  Transmission Date: 20200122
  Serious: Yes (Life-Threatening, Hospitalization, Disabling)
  Sender: FDA-Public Use
  Company Number: None

PATIENT
  Age: 22 Year
  Sex: Female
  Weight: 40.5 kg

DRUGS (10)
  1. RITALIN [Concomitant]
     Active Substance: METHYLPHENIDATE HYDROCHLORIDE
  2. PANTOPRAZOLE [Concomitant]
     Active Substance: PANTOPRAZOLE
  3. XYREM [Suspect]
     Active Substance: SODIUM OXYBATE
  4. ZOLOFT [Concomitant]
     Active Substance: SERTRALINE HYDROCHLORIDE
  5. BUSPAR [Concomitant]
     Active Substance: BUSPIRONE HYDROCHLORIDE
  6. SUNOSI [Concomitant]
     Active Substance: SOLRIAMFETOL
  7. MULTI VITAMIN [Concomitant]
     Active Substance: VITAMINS
  8. VYVANSE [Suspect]
     Active Substance: LISDEXAMFETAMINE DIMESYLATE
     Indication: ATTENTION DEFICIT/HYPERACTIVITY DISORDER
     Dosage: ?          QUANTITY:30 CAPSULE(S);?
     Route: 048
     Dates: start: 20150201, end: 20190901
  9. XYREM [Concomitant]
     Active Substance: SODIUM OXYBATE
  10. KLONOPIN [Concomitant]
     Active Substance: CLONAZEPAM

REACTIONS (13)
  - Musculoskeletal stiffness [None]
  - Tachycardia [None]
  - Vomiting [None]
  - Pollakiuria [None]
  - Rhabdomyolysis [None]
  - Pain in extremity [None]
  - Arthritis [None]
  - Chromaturia [None]
  - Nausea [None]
  - Narcolepsy [None]
  - Muscle spasms [None]
  - Myalgia [None]
  - Blood pressure abnormal [None]

NARRATIVE: CASE EVENT DATE: 20170902
